FAERS Safety Report 16236560 (Version 1)
Quarter: 2019Q2

REPORT INFORMATION
  Report Type: Spontaneous
  Country: IQ (occurrence: IQ)
  Receive Date: 20190425
  Receipt Date: 20190425
  Transmission Date: 20190711
  Serious: Yes (Other)
  Sender: FDA-Public Use
  Company Number: IQ-ASTELLAS-2019US017425

PATIENT
  Age: 38 Year
  Sex: Female

DRUGS (2)
  1. ERLOTINIB [Suspect]
     Active Substance: ERLOTINIB
     Indication: LUNG ADENOCARCINOMA
     Route: 048
  2. ERLOTINIB [Suspect]
     Active Substance: ERLOTINIB
     Dosage: 100 MG, MONTHLY (FOR ABOUT 14 MONTHS)
     Route: 048
     Dates: start: 201801

REACTIONS (5)
  - Vision blurred [Unknown]
  - Rash [Unknown]
  - Eye pruritus [Unknown]
  - Cataract [Recovering/Resolving]
  - Episcleritis [Unknown]

NARRATIVE: CASE EVENT DATE: 201901
